FAERS Safety Report 18338346 (Version 1)
Quarter: 2020Q4

REPORT INFORMATION
  Report Type: Report from Study
  Country: US (occurrence: US)
  Receive Date: 20201002
  Receipt Date: 20201002
  Transmission Date: 20210113
  Serious: Yes (Other)
  Sender: FDA-Public Use
  Company Number: US-PFIZER INC-2020376882

PATIENT
  Age: 17 Year
  Sex: Male

DRUGS (5)
  1. IFOSFAMIDE. [Interacting]
     Active Substance: IFOSFAMIDE
     Indication: OSTEOSARCOMA
     Dosage: 1600 MG/M2, DAILY (OVER 15 MINUTES, ADMINISTERED AT 21- TO 28-DAY INTERVALS)
     Route: 042
  2. DEXTROSE. [Concomitant]
     Active Substance: DEXTROSE
     Dosage: 1000 ML/M^2, IN 1/3 NORMAL SALINE
  3. CHLORPROMAZINE HYDROCHLORIDE. [Interacting]
     Active Substance: CHLORPROMAZINE HYDROCHLORIDE
     Dosage: UNK
  4. HYDROXYZINE PAMOATE. [Suspect]
     Active Substance: HYDROXYZINE PAMOATE
     Dosage: UNK
  5. MESNA. [Interacting]
     Active Substance: MESNA
     Indication: OSTEOSARCOMA
     Dosage: 400 MG/M2, DAILY (AT FOUR AND SIX HOURS AFTER IFOSFAMIDE)

REACTIONS (3)
  - Drug interaction [Unknown]
  - Facial paresis [Recovered/Resolved]
  - Neurotoxicity [Unknown]
